FAERS Safety Report 12184301 (Version 1)
Quarter: 2016Q1

REPORT INFORMATION
  Report Type: Report from Study
  Country: MX (occurrence: MX)
  Receive Date: 20160316
  Receipt Date: 20160316
  Transmission Date: 20160526
  Serious: Yes (Other)
  Sender: FDA-Public Use
  Company Number: PHHY2016MX034383

PATIENT
  Sex: Female

DRUGS (2)
  1. ACLASTA [Suspect]
     Active Substance: ZOLEDRONIC ACID
     Indication: OSTEOPOROSIS
     Dosage: 1 DF( 5 MG) ,Q12MO
     Route: 065
  2. CALTRATE 600+D [Concomitant]
     Indication: PRODUCT USED FOR UNKNOWN INDICATION
     Route: 065

REACTIONS (8)
  - Joint injury [Unknown]
  - Gait disturbance [Unknown]
  - Ankle fracture [Unknown]
  - Nephrolithiasis [Unknown]
  - Calcium deficiency [Unknown]
  - Lower limb fracture [Unknown]
  - Bone pain [Unknown]
  - Arthralgia [Unknown]
